FAERS Safety Report 5203903-3 (Version None)
Quarter: 2007Q1

REPORT INFORMATION
  Report Type: 
  Country: None (occurrence: None)
  Receive Date: 20070105
  Receipt Date: 20061228
  Transmission Date: 20070707
  Serious: Yes (Hospitalization)
  Sender: FDA-Public Use
  Company Number: 238465K06USA

PATIENT
  Age: 33 Year
  Sex: Male

DRUGS (3)
  1. REBIF [Suspect]
     Indication: MULTIPLE SCLEROSIS
     Dosage: 22 MCG, 3 IN 1 WEEKS, SUBCUTANEOUS
     Route: 058
     Dates: start: 20050805, end: 20061201
  2. ALBUTEROL [Concomitant]
  3. COMBIVENT (BREVA) [Concomitant]

REACTIONS (16)
  - ABASIA [None]
  - BLISTER [None]
  - DISORIENTATION [None]
  - FAECAL INCONTINENCE [None]
  - FATIGUE [None]
  - FEEDING DISORDER [None]
  - GAIT DISTURBANCE [None]
  - LOCAL SWELLING [None]
  - MALAISE [None]
  - MEMORY IMPAIRMENT [None]
  - MULTIPLE SCLEROSIS RELAPSE [None]
  - MUSCLE SPASMS [None]
  - PHARYNGOLARYNGEAL PAIN [None]
  - TREMOR [None]
  - URINARY INCONTINENCE [None]
  - WHITE BLOOD CELL COUNT INCREASED [None]
